FAERS Safety Report 4977106-1 (Version None)
Quarter: 2006Q2

REPORT INFORMATION
  Report Type: 
  Country: None (occurrence: None)
  Receive Date: 20060412
  Receipt Date: 20060405
  Transmission Date: 20061013
  Serious: Yes (Life-Threatening, Hospitalization, Other)
  Sender: FDA-Public Use
  Company Number: HQWYE639614JAN05

PATIENT
  Age: 28 Year
  Sex: Female
  Weight: 63.56 kg

DRUGS (4)
  1. EFFEXOR [Suspect]
     Indication: ANXIETY
     Dosage: SEE IMAGE
     Route: 048
     Dates: start: 20041101
  2. EFFEXOR [Suspect]
     Indication: DEPRESSION
     Dosage: SEE IMAGE
     Route: 048
     Dates: start: 20041101
  3. ORAL CONTRACEPTIVE [Concomitant]
  4. ZYPREXA [Concomitant]

REACTIONS (11)
  - ABNORMAL BEHAVIOUR [None]
  - AGITATION [None]
  - CRYING [None]
  - DELUSION [None]
  - DEPRESSION [None]
  - FAMILY STRESS [None]
  - PARANOIA [None]
  - PSYCHOMOTOR HYPERACTIVITY [None]
  - PSYCHOTIC DISORDER [None]
  - SUICIDE ATTEMPT [None]
  - THINKING ABNORMAL [None]
